FAERS Safety Report 9461538 (Version 1)
Quarter: 2013Q3

REPORT INFORMATION
  Report Type: Spontaneous
  Country: US (occurrence: US)
  Receive Date: 20130816
  Receipt Date: 20130816
  Transmission Date: 20140515
  Serious: No
  Sender: FDA-Public Use
  Company Number: US-009507513-1308USA005372

PATIENT
  Age: 62 Year
  Sex: Female

DRUGS (4)
  1. AZASITE [Suspect]
     Dosage: UNK, ONE DROP IN EACH EYE AT BEDTIME
     Route: 047
     Dates: start: 201308
  2. AZASITE [Suspect]
     Dosage: UNK, ONE DROP IN EACH EYE AT BEDTIME
     Route: 047
     Dates: start: 20101101, end: 201011
  3. AZASITE [Suspect]
     Dosage: UNK, ONE DROP IN EACH EYE AT BEDTIME
     Route: 047
     Dates: start: 201011, end: 2010
  4. AZASITE [Suspect]
     Dosage: UNK, ONE DROP IN EACH EYE AT BEDTIME
     Route: 047
     Dates: start: 201012

REACTIONS (3)
  - Inappropriate schedule of drug administration [Unknown]
  - Inappropriate schedule of drug administration [Unknown]
  - No adverse event [Unknown]
